FAERS Safety Report 10898615 (Version 1)
Quarter: 2015Q1

REPORT INFORMATION
  Report Type: Spontaneous
  Country: US (occurrence: None)
  Receive Date: 20150303
  Receipt Date: 20150303
  Transmission Date: 20150721
  Serious: Yes (Other)
  Sender: FDA-Public Use
  Company Number: None

PATIENT
  Age: 55 Year
  Sex: Female
  Weight: 72.58 kg

DRUGS (7)
  1. PROVENTIL HFA [Suspect]
     Active Substance: ALBUTEROL SULFATE
     Indication: ASTHMA
     Route: 055
     Dates: start: 20140414, end: 20150225
  2. GINGER. [Concomitant]
     Active Substance: GINGER
  3. VITAMIN C [Concomitant]
     Active Substance: ASCORBIC ACID
  4. HOT TEA [Concomitant]
  5. COFFEE [Concomitant]
     Active Substance: ARABICA COFFEE BEAN\COFFEE BEAN
  6. FISH OIL [Concomitant]
     Active Substance: FISH OIL
  7. VITAMIN B [Concomitant]
     Active Substance: VITAMIN B

REACTIONS (3)
  - Drug ineffective [None]
  - Product substitution issue [None]
  - Cough [None]

NARRATIVE: CASE EVENT DATE: 20150226
